FAERS Safety Report 15984052 (Version 1)
Quarter: 2019Q1

REPORT INFORMATION
  Report Type: Spontaneous
  Country: US (occurrence: US)
  Receive Date: 20190220
  Receipt Date: 20190220
  Transmission Date: 20190418
  Serious: Yes (Other)
  Sender: FDA-Public Use
  Company Number: US-AMGEN INC.-USASL2019025879

PATIENT

DRUGS (1)
  1. AIMOVIG [Suspect]
     Active Substance: ERENUMAB-AOOE
     Indication: MIGRAINE
     Dosage: 70 MG, UNK
     Route: 065
     Dates: start: 2018

REACTIONS (6)
  - Alopecia [Unknown]
  - Insomnia [Unknown]
  - Mood swings [Unknown]
  - Irritability [Unknown]
  - Pain [Unknown]
  - Small intestinal obstruction [Unknown]
